FAERS Safety Report 23671058 (Version 1)
Quarter: 2024Q1

REPORT INFORMATION
  Report Type: Spontaneous
  Country: US (occurrence: US)
  Receive Date: 20240326
  Receipt Date: 20240326
  Transmission Date: 20240410
  Serious: Yes (Hospitalization, Other)
  Sender: FDA-Public Use
  Company Number: US-LUPIN PHARMACEUTICALS INC.-2024-02359

PATIENT
  Age: 9 Year
  Sex: Male

DRUGS (2)
  1. CEPHALEXIN [Suspect]
     Active Substance: CEPHALEXIN
     Indication: Staphylococcal bacteraemia
     Dosage: 1500 MG, TID (EVERY 8 HOURS)
     Route: 048
  2. CEPHALEXIN [Suspect]
     Active Substance: CEPHALEXIN
     Indication: Osteomyelitis

REACTIONS (1)
  - Cystitis haemorrhagic [Recovered/Resolved]
